FAERS Safety Report 6062872-7 (Version None)
Quarter: 2009Q1

REPORT INFORMATION
  Report Type: 
  Country: None (occurrence: None)
  Receive Date: 20090202
  Receipt Date: 20090202
  Transmission Date: 20090719
  Serious: Yes (Other)
  Sender: FDA-Public Use
  Company Number: None

PATIENT
  Sex: Female
  Weight: 56.6996 kg

DRUGS (1)
  1. TOPAMAX [Suspect]
     Indication: MIGRAINE
     Dosage: ABOUT 6 YEARS AGO

REACTIONS (5)
  - CONDITION AGGRAVATED [None]
  - HALLUCINATION [None]
  - HEADACHE [None]
  - MALAISE [None]
  - SLEEP TALKING [None]
